FAERS Safety Report 7678422-5 (Version None)
Quarter: 2011Q3

REPORT INFORMATION
  Report Type: 
  Country: None (occurrence: None)
  Receive Date: 20110811
  Receipt Date: 20110808
  Transmission Date: 20111222
  Serious: Yes (Hospitalization, Other)
  Sender: FDA-Public Use
  Company Number: US-PFIZER INC-2011093768

PATIENT
  Sex: Male

DRUGS (4)
  1. CHANTIX [Suspect]
     Indication: SMOKING CESSATION THERAPY
     Dosage: '5MG' AND 1MG TABLETS DAILY
     Route: 048
     Dates: start: 20091014, end: 20091028
  2. OXYCODONE [Concomitant]
     Indication: PAIN
     Dosage: UNK
  3. MELOXICAM [Concomitant]
     Indication: ARTHRITIS
     Dosage: UNK
     Dates: start: 20030101
  4. CYMBALTA [Concomitant]
     Indication: NEURALGIA
     Dosage: UNK

REACTIONS (6)
  - LIMB TRAUMATIC AMPUTATION [None]
  - BACK PAIN [None]
  - ARTHRALGIA [None]
  - ROAD TRAFFIC ACCIDENT [None]
  - NECK PAIN [None]
  - LOSS OF CONSCIOUSNESS [None]
